FAERS Safety Report 9893738 (Version 2)
Quarter: 2014Q1

REPORT INFORMATION
  Report Type: Spontaneous
  Country: US (occurrence: US)
  Receive Date: 20140213
  Receipt Date: 20140224
  Transmission Date: 20141002
  Serious: Yes (Death, Other)
  Sender: FDA-Public Use
  Company Number: US-SA-2014SA016428

PATIENT
  Age: 67 Year
  Sex: Male

DRUGS (1)
  1. FABRAZYME [Suspect]
     Indication: FABRY^S DISEASE
     Route: 042
     Dates: start: 201212, end: 201401

REACTIONS (3)
  - Death [Fatal]
  - Parkinson^s disease [Unknown]
  - Nephropathy [Unknown]
